FAERS Safety Report 8310035-4 (Version None)
Quarter: 2012Q2

REPORT INFORMATION
  Report Type: 
  Country: None (occurrence: None)
  Receive Date: 20120423
  Receipt Date: 20120411
  Transmission Date: 20120825
  Serious: Yes (Other)
  Sender: FDA-Public Use
  Company Number: 2012P1012700

PATIENT
  Age: 70 Year
  Sex: Female
  Weight: 65.7716 kg

DRUGS (4)
  1. LIPITOR [Concomitant]
  2. ALBENZA [Suspect]
     Indication: INFECTION PARASITIC
     Dosage: 400 MG;X1
     Dates: start: 20120403, end: 20120403
  3. ASPIRIN [Concomitant]
  4. PLAVIX [Concomitant]

REACTIONS (10)
  - SPEECH DISORDER [None]
  - DIPLOPIA [None]
  - DIZZINESS [None]
  - APHASIA [None]
  - NAUSEA [None]
  - BLOOD PRESSURE INCREASED [None]
  - DYSKINESIA [None]
  - FATIGUE [None]
  - ASTHENIA [None]
  - LOSS OF CONSCIOUSNESS [None]
